FAERS Safety Report 24005283 (Version 1)
Quarter: 2024Q2

REPORT INFORMATION
  Report Type: Spontaneous
  Country: CA (occurrence: CA)
  Receive Date: 20240624
  Receipt Date: 20240624
  Transmission Date: 20240716
  Serious: Yes (Death, Life-Threatening, Hospitalization)
  Sender: FDA-Public Use
  Company Number: CA-FreseniusKabi-FK202409640

PATIENT
  Age: 3 Year
  Sex: Female

DRUGS (5)
  1. IRINOTECAN HYDROCHLORIDE [Suspect]
     Active Substance: IRINOTECAN HYDROCHLORIDE
     Indication: Neuroblastoma recurrent
     Dosage: ROUT OF ADMIN: UNKNOWN
  2. DASATINIB [Concomitant]
     Active Substance: DASATINIB
     Indication: Neuroblastoma recurrent
     Dosage: FOA: NOT SPECIFIED
  3. RAPAMUNE [Concomitant]
     Active Substance: SIROLIMUS
     Indication: Neuroblastoma recurrent
     Dosage: FOA: NOT SPECIFIED
  4. RAPAMUNE [Concomitant]
     Active Substance: SIROLIMUS
  5. TEMOZOLOMIDE [Concomitant]
     Active Substance: TEMOZOLOMIDE
     Indication: Neuroblastoma recurrent
     Dosage: FOA: NOT SPECIFIED

REACTIONS (6)
  - Cancer pain [Fatal]
  - Dyspnoea [Fatal]
  - Neoplasm progression [Fatal]
  - Off label use [Fatal]
  - Pyrexia [Fatal]
  - Somnolence [Fatal]
